FAERS Safety Report 9948251 (Version 1)
Quarter: 2014Q1

REPORT INFORMATION
  Report Type: Report from Study
  Country: US (occurrence: US)
  Receive Date: 20140303
  Receipt Date: 20140303
  Transmission Date: 20141002
  Serious: No
  Sender: FDA-Public Use
  Company Number: US-ABBVIE-13P-163-1059240-00

PATIENT
  Age: 24 Year
  Sex: Female

DRUGS (12)
  1. HUMIRA [Suspect]
     Indication: CROHN^S DISEASE
     Route: 058
     Dates: start: 20130118
  2. OMEPRAZOLE [Concomitant]
     Indication: GASTROOESOPHAGEAL REFLUX DISEASE
  3. HYDROXYZINE PAMOATE [Concomitant]
     Indication: INSOMNIA
     Dosage: 2-4 CAPSULES AT BEDTIME
  4. CIMETIDINE [Concomitant]
     Indication: SKIN PAPILLOMA
  5. HYOSCYAMINE [Concomitant]
     Indication: CROHN^S DISEASE
     Dosage: 0.375 ER
  6. LEVETIRACETAM [Concomitant]
     Indication: CONVULSION
  7. PROMETHAZINE [Concomitant]
     Indication: NAUSEA
     Dosage: EVERY 6 HOURS AS NEEDED- PT TAKES ONE DAILY
  8. AZATHIOPRINE [Concomitant]
     Indication: CROHN^S DISEASE
  9. SERTRALINE [Concomitant]
     Indication: DEPRESSION
  10. GIANVI 3 [Concomitant]
     Indication: CONTRACEPTION
     Route: 048
  11. AZITHROMYCIN [Concomitant]
     Indication: SINUSITIS
  12. FLUTICASONE NASAL SPRAY [Concomitant]
     Indication: SINUSITIS
     Route: 045

REACTIONS (1)
  - Sinusitis [Recovering/Resolving]
